FAERS Safety Report 8505476-6 (Version None)
Quarter: 2012Q3

REPORT INFORMATION
  Report Type: 
  Country: None (occurrence: None)
  Receive Date: 20120712
  Receipt Date: 20120709
  Transmission Date: 20120928
  Serious: Yes (Death, Life-Threatening)
  Sender: FDA-Public Use
  Company Number: JP-PFIZER INC-2012104100

PATIENT
  Age: 64 Year
  Sex: Male
  Weight: 76 kg

DRUGS (12)
  1. SULFAMETHOXAZOLE AND TRIMETHOPRIM [Concomitant]
     Indication: INFECTION PROPHYLAXIS
     Dosage: 1 G, 2X/DAY
     Route: 048
     Dates: start: 20120405, end: 20120401
  2. ALBUMIN (HUMAN) [Concomitant]
     Indication: MALNUTRITION
     Dosage: ONCE A DAY
     Route: 041
     Dates: start: 20120408, end: 20120410
  3. FENTANYL [Concomitant]
     Indication: ANALGESIC THERAPY
     Dosage: UNK
     Route: 041
     Dates: start: 20120403, end: 20120502
  4. RISPERDAL [Concomitant]
     Indication: SEDATION
     Dosage: 1 MG, 1X/DAY
     Route: 051
     Dates: start: 20120419, end: 20120507
  5. ALBUMIN (HUMAN) [Concomitant]
     Indication: BLOOD ALBUMIN DECREASED
  6. FAMOTIDINE [Concomitant]
     Indication: PROPHYLAXIS AGAINST GASTROINTESTINAL ULCER
     Dosage: 10 MG, 2X/DAY
     Route: 048
     Dates: start: 20120413, end: 20120507
  7. PRECEDEX [Concomitant]
     Indication: SEDATION
     Dosage: UNK
     Route: 041
     Dates: start: 20120414, end: 20120418
  8. CRIZOTINIB [Suspect]
     Indication: NON-SMALL CELL LUNG CANCER
     Dosage: 250 MG, 2X/DAY
     Route: 048
     Dates: start: 20120408, end: 20120507
  9. GANCICLOVIR [Concomitant]
     Indication: INFECTION PROPHYLAXIS
     Dosage: UNK
     Route: 041
     Dates: start: 20120403, end: 20120412
  10. MEROPENEM [Concomitant]
     Indication: INFECTION PROPHYLAXIS
     Dosage: 1 G, 3X/DAY
     Route: 041
     Dates: start: 20120405, end: 20120421
  11. MIDAZOLAM HCL [Concomitant]
     Indication: SEDATION
     Dosage: UNK
     Route: 041
     Dates: start: 20120403, end: 20120413
  12. ELNEOPA NO.2 [Concomitant]
     Indication: NUTRITIONAL SUPPORT
     Dosage: 1000 ML, 1X/DAY
     Route: 041
     Dates: start: 20120409, end: 20120409

REACTIONS (3)
  - DISEASE PROGRESSION [None]
  - NON-SMALL CELL LUNG CANCER [None]
  - HAEMOPTYSIS [None]
